FAERS Safety Report 9633172 (Version 1)
Quarter: 2013Q4

REPORT INFORMATION
  Report Type: Spontaneous
  Country: US (occurrence: US)
  Receive Date: 20131020
  Receipt Date: 20131020
  Transmission Date: 20140711
  Serious: No
  Sender: FDA-Public Use
  Company Number: US-TEVA-438925USA

PATIENT
  Age: 9 Year
  Sex: Female
  Weight: 30.42 kg

DRUGS (3)
  1. QVAR [Suspect]
     Indication: ASTHMA
     Dosage: 160 MICROGRAM DAILY; 2 PUFFS
  2. NASONEX [Concomitant]
     Indication: ASTHMA
  3. ZYRTEC [Concomitant]
     Indication: HYPERSENSITIVITY

REACTIONS (2)
  - Swelling face [Not Recovered/Not Resolved]
  - Ear swelling [Not Recovered/Not Resolved]
